FAERS Safety Report 5280021-X (Version None)
Quarter: 2007Q1

REPORT INFORMATION
  Report Type: 
  Country: None (occurrence: None)
  Receive Date: 20070329
  Receipt Date: 20070319
  Transmission Date: 20070707
  Serious: Yes (Hospitalization, Disabling)
  Sender: FDA-Public Use
  Company Number: PHBS2005AT09514

PATIENT
  Sex: Male

DRUGS (2)
  1. LIORESAL [Suspect]
     Route: 037
  2. LIORESAL [Suspect]
     Dosage: 25 MG, TID
     Route: 048

REACTIONS (10)
  - ADHESION [None]
  - ANTIPHOSPHOLIPID ANTIBODIES POSITIVE [None]
  - BRAIN STEM SYNDROME [None]
  - CSF PROTEIN INCREASED [None]
  - DYSTONIA [None]
  - EATON-LAMBERT SYNDROME [None]
  - HYPOTONIA [None]
  - MOBILITY DECREASED [None]
  - MUSCULAR WEAKNESS [None]
  - SERUM PROCOLLAGEN TYPE III N-TERMINAL PROPEPTIDE [None]
